FAERS Safety Report 6213557-5 (Version None)
Quarter: 2009Q2

REPORT INFORMATION
  Report Type: 
  Country: None (occurrence: None)
  Receive Date: 20090603
  Receipt Date: 20090527
  Transmission Date: 20091009
  Serious: Yes (Other)
  Sender: FDA-Public Use
  Company Number: TR-JNJFOC-20090600029

PATIENT
  Age: 28 Year
  Sex: Female

DRUGS (7)
  1. RISPERDAL CONSTA [Suspect]
     Indication: SCHIZOAFFECTIVE DISORDER
     Route: 030
  2. PALIPERIDONE [Suspect]
     Route: 065
  3. PALIPERIDONE [Suspect]
     Route: 065
  4. PALIPERIDONE [Suspect]
     Indication: SCHIZOAFFECTIVE DISORDER
     Route: 065
  5. OLANZAPINE [Suspect]
     Indication: SCHIZOAFFECTIVE DISORDER
     Route: 065
  6. RISPERDAL [Suspect]
     Indication: DRUG USE FOR UNKNOWN INDICATION
     Dosage: 4-6MG PER DAY
     Route: 065
  7. UNSPECIFIED GENERIC DRUG [Concomitant]
     Route: 065

REACTIONS (7)
  - DECREASED INTEREST [None]
  - FATIGUE [None]
  - HYPERSOMNIA [None]
  - INCREASED APPETITE [None]
  - METABOLIC SYNDROME [None]
  - SCHIZOAFFECTIVE DISORDER [None]
  - WEIGHT DECREASED [None]
